FAERS Safety Report 24465445 (Version 1)
Quarter: 2024Q4

REPORT INFORMATION
  Report Type: Report from Study
  Country: US (occurrence: US)
  Receive Date: 20241018
  Receipt Date: 20241018
  Transmission Date: 20250114
  Serious: No
  Sender: ROCHE
  Company Number: US-ROCHE-3525174

PATIENT

DRUGS (1)
  1. XOLAIR [Suspect]
     Active Substance: OMALIZUMAB
     Indication: Angioedema
     Route: 065

REACTIONS (13)
  - Exophthalmos [Unknown]
  - Lymphadenopathy [Unknown]
  - Off label use [Unknown]
  - Eye pain [Unknown]
  - Sinusitis [Unknown]
  - Neck pain [Unknown]
  - Hyperhidrosis [Unknown]
  - Feeling hot [Unknown]
  - Migraine [Unknown]
  - Facial pain [Unknown]
  - Lacrimation increased [Unknown]
  - Mydriasis [Unknown]
  - Eye disorder [Unknown]
